FAERS Safety Report 6694138-6 (Version None)
Quarter: 2010Q2

REPORT INFORMATION
  Report Type: 
  Country: None (occurrence: None)
  Receive Date: 20100423
  Receipt Date: 20090521
  Transmission Date: 20101027
  Serious: No
  Sender: FDA-Public Use
  Company Number: A0787502A

PATIENT

DRUGS (3)
  1. FLUTICASONE PROPIONATE [Suspect]
     Indication: DRUG USE FOR UNKNOWN INDICATION
     Route: 065
  2. ALVESCO [Suspect]
     Indication: DRUG USE FOR UNKNOWN INDICATION
     Dosage: 160MCG UNKNOWN
     Route: 055
  3. UNKNOWN [Concomitant]

REACTIONS (1)
  - CANDIDIASIS [None]
